FAERS Safety Report 7772665-8 (Version None)
Quarter: 2011Q3

REPORT INFORMATION
  Report Type: 
  Country: None (occurrence: None)
  Receive Date: 20110922
  Receipt Date: 20110113
  Transmission Date: 20111222
  Serious: No
  Sender: FDA-Public Use
  Company Number: US-ASTRAZENECA-2011SE02392

PATIENT
  Age: 39 Year
  Sex: Female

DRUGS (3)
  1. SEROQUEL XR [Suspect]
     Indication: BIPOLAR I DISORDER
     Route: 048
  2. SEROQUEL XR [Suspect]
     Indication: PANIC ATTACK
     Route: 048
  3. SEROQUEL XR [Suspect]
     Indication: BIPOLAR DISORDER
     Route: 048

REACTIONS (5)
  - DRUG DOSE OMISSION [None]
  - INFLUENZA LIKE ILLNESS [None]
  - BIPOLAR I DISORDER [None]
  - PANIC ATTACK [None]
  - NASOPHARYNGITIS [None]
